FAERS Safety Report 21579791 (Version 2)
Quarter: 2022Q4

REPORT INFORMATION
  Report Type: Spontaneous
  Country: TW (occurrence: TW)
  Receive Date: 20221110
  Receipt Date: 20221201
  Transmission Date: 20230112
  Serious: Yes (Hospitalization)
  Sender: FDA-Public Use
  Company Number: TW-ELI_LILLY_AND_COMPANY-TW202211002336

PATIENT
  Age: 69 Year
  Sex: Female
  Weight: 60 kg

DRUGS (2)
  1. CYRAMZA [Suspect]
     Active Substance: RAMUCIRUMAB
     Indication: Lung neoplasm malignant
     Dosage: 500 MG, UNKNOWN
     Route: 042
     Dates: start: 20210802, end: 20220927
  2. ERLOTINIB [Concomitant]
     Active Substance: ERLOTINIB
     Indication: Lung neoplasm malignant
     Dosage: 30 MG, DAILY
     Dates: start: 20210802, end: 20220927

REACTIONS (1)
  - Peptic ulcer perforation [Recovered/Resolved]

NARRATIVE: CASE EVENT DATE: 20220912
